FAERS Safety Report 4625710-2 (Version None)
Quarter: 2005Q1

REPORT INFORMATION
  Report Type: 
  Country: None (occurrence: None)
  Receive Date: 20050330
  Receipt Date: 20050321
  Transmission Date: 20050727
  Serious: Yes (Hospitalization, Other)
  Sender: FDA-Public Use
  Company Number: 2005-02-0058

PATIENT
  Age: 44 Year
  Sex: Male
  Weight: 68 kg

DRUGS (6)
  1. VIRAFERONPEG [Suspect]
     Indication: HEPATITIS C
     Dosage: 1.5 UG/KG QW* SUBCUTANEOUS
     Route: 058
     Dates: start: 20010626, end: 20030528
  2. VIRAFERONPEG [Suspect]
     Indication: HEPATITIS C
     Dosage: 1.5 UG/KG QW SUBCUTANEOUS
     Route: 058
     Dates: start: 20010626, end: 20020422
  3. VIRAFERONPEG [Suspect]
     Indication: HEPATITIS C
     Dosage: 1.5 UG/KG QW SUBCUTANEOUS
     Route: 058
     Dates: start: 20030401, end: 20030528
  4. REBETOL [Suspect]
     Indication: HEPATITIS C
     Dosage: 800 MG QD* ORAL
     Route: 048
     Dates: start: 20010626, end: 20030528
  5. REBETOL [Suspect]
     Indication: HEPATITIS C
     Dosage: 800 MG QD ORAL
     Route: 048
     Dates: start: 20010626, end: 20020422
  6. REBETOL [Suspect]
     Indication: HEPATITIS C
     Dosage: 800 MG QD ORAL
     Route: 048
     Dates: start: 20030401, end: 20030528

REACTIONS (1)
  - PNEUMOTHORAX [None]
